FAERS Safety Report 18072386 (Version 1)
Quarter: 2020Q3

REPORT INFORMATION
  Report Type: Spontaneous
  Country: US (occurrence: US)
  Receive Date: 20200727
  Receipt Date: 20200727
  Transmission Date: 20201103
  Serious: No
  Sender: FDA-Public Use
  Company Number: US-BAYER-2020-144607

PATIENT
  Age: 59 Year
  Sex: Female

DRUGS (1)
  1. ALEVE [Suspect]
     Active Substance: NAPROXEN SODIUM
     Indication: ARTHRALGIA
     Dosage: UNK
     Route: 048
     Dates: start: 2005

REACTIONS (2)
  - Incorrect product administration duration [None]
  - Incorrect dose administered [Not Recovered/Not Resolved]
